FAERS Safety Report 17922022 (Version 2)
Quarter: 2020Q3

REPORT INFORMATION
  Report Type: Spontaneous
  Country: GB (occurrence: GB)
  Receive Date: 20200622
  Receipt Date: 20200701
  Transmission Date: 20201103
  Serious: Yes (Hospitalization)
  Sender: FDA-Public Use
  Company Number: GB-IPSEN BIOPHARMACEUTICALS, INC.-2020-10820

PATIENT
  Age: 61 Year
  Sex: Female

DRUGS (2)
  1. AZZALURE [Suspect]
     Active Substance: BOTULINUM TOXIN TYPE A
     Indication: OFF LABEL USE
  2. AZZALURE [Suspect]
     Active Substance: BOTULINUM TOXIN TYPE A
     Indication: SKIN WRINKLING
     Dosage: 5 X 10 MG  (5 INJECTION POINT ON FRONTALIS)
     Route: 030

REACTIONS (4)
  - Headache [Unknown]
  - Off label use [Unknown]
  - Blood pressure increased [Unknown]
  - Cerebral haemorrhage [Unknown]
